FAERS Safety Report 4666701-5 (Version None)
Quarter: 2005Q2

REPORT INFORMATION
  Report Type: 
  Country: None (occurrence: None)
  Receive Date: 20050518
  Receipt Date: 20050502
  Transmission Date: 20051028
  Serious: Yes (Hospitalization, Other)
  Sender: FDA-Public Use
  Company Number: FRWYE633902MAY05

PATIENT
  Age: 54 Year
  Sex: Female

DRUGS (10)
  1. SOPROL (BISOPROLOL, TABLET, 0) [Suspect]
     Dosage: 10 MG 1X PER 1 DAY
     Dates: start: 20050310, end: 20050311
  2. AUGMENTIN [Suspect]
     Dosage: 1 G 3X PER 1 DAY
     Route: 042
     Dates: start: 20050308, end: 20050309
  3. PRAVASTATIN [Suspect]
     Route: 048
     Dates: start: 20050310, end: 20050315
  4. KARDEGIC (ACETYLSALICYLATE LYSINE) [Suspect]
     Dosage: 160 MG 1X PER 1 DAY
     Route: 048
     Dates: start: 20050311, end: 20050314
  5. OMEPRAZOLE [Suspect]
     Dosage: 20 MG 1 X PER 1 DAY
     Route: 048
     Dates: start: 20050310, end: 20050315
  6. ACETAMINOPHEN [Suspect]
     Dosage: 1 G 3X PER 1 DAY
     Dates: start: 20050308, end: 20000315
  7. PLAVIX [Suspect]
     Route: 048
     Dates: start: 20050310, end: 20050310
  8. SPASFON (PHLOROGLUCINOL/TRIMETHYLPHLOROGLUCINOL) [Suspect]
     Dates: start: 20050308, end: 20050310
  9. TAHOR (ATORVASTATIN) [Suspect]
     Dosage: ORAL
     Route: 048
     Dates: start: 20050310, end: 20050310
  10. TRAMADOL HCL [Suspect]
     Dates: start: 20050308, end: 20050315

REACTIONS (1)
  - URTICARIA [None]
